FAERS Safety Report 13855881 (Version 1)
Quarter: 2017Q3

REPORT INFORMATION
  Report Type: Other
  Country: CN (occurrence: CN)
  Receive Date: 20170810
  Receipt Date: 20170810
  Transmission Date: 20171127
  Serious: Yes (Life-Threatening, Hospitalization)
  Sender: FDA-Public Use
  Company Number: CN-GEHC-2017CSU002379

PATIENT

DRUGS (1)
  1. OMNIPAQUE [Suspect]
     Active Substance: IOHEXOL
     Indication: ARTERIOSCLEROSIS CORONARY ARTERY
     Dosage: 80 ML, SINGLE
     Route: 042
     Dates: start: 20170524, end: 20170524

REACTIONS (2)
  - Supraventricular tachycardia [Recovered/Resolved]
  - Hypersensitivity [Recovered/Resolved]

NARRATIVE: CASE EVENT DATE: 20170524
